FAERS Safety Report 8555126-8 (Version None)
Quarter: 2012Q3

REPORT INFORMATION
  Report Type: 
  Country: None (occurrence: None)
  Receive Date: 20120731
  Receipt Date: 20120726
  Transmission Date: 20120928
  Serious: Yes (Other)
  Sender: FDA-Public Use
  Company Number: US-FRI-1000031551

PATIENT
  Sex: Female
  Weight: 97 kg

DRUGS (5)
  1. VIIBRYD [Suspect]
     Indication: DEPRESSION
     Dosage: 40 MG
     Route: 048
     Dates: start: 20120518, end: 20120614
  2. XANAX [Concomitant]
  3. VIIBRYD [Suspect]
     Indication: ANXIETY
  4. LOSARTAN POTASSIUM [Concomitant]
  5. PROTONIX [Concomitant]

REACTIONS (1)
  - SUICIDAL IDEATION [None]
